FAERS Safety Report 11982981 (Version 2)
Quarter: 2016Q1

REPORT INFORMATION
  Report Type: Spontaneous
  Country: US (occurrence: US)
  Receive Date: 20160201
  Receipt Date: 20160205
  Transmission Date: 20160526
  Serious: No
  Sender: FDA-Public Use
  Company Number: US-PFIZER INC-2016029689

PATIENT
  Age: 61 Year
  Sex: Female

DRUGS (1)
  1. SUTENT [Suspect]
     Active Substance: SUNITINIB MALATE
     Indication: RENAL CANCER
     Dosage: 37.5 MG, CYCLIC (1D-14D Q 21D)
     Route: 048
     Dates: start: 20140820

REACTIONS (6)
  - Nasal congestion [Unknown]
  - Lacrimation increased [Unknown]
  - Gastroenteritis viral [Unknown]
  - Sneezing [Unknown]
  - Epistaxis [Unknown]
  - Blood pressure increased [Unknown]

NARRATIVE: CASE EVENT DATE: 20160118
